FAERS Safety Report 10087955 (Version 3)
Quarter: 2014Q2

REPORT INFORMATION
  Report Type: Spontaneous
  Country: US (occurrence: US)
  Receive Date: 20140419
  Receipt Date: 20140526
  Transmission Date: 20141212
  Serious: No
  Sender: FDA-Public Use
  Company Number: US-009507513-1404USA010169

PATIENT
  Age: 29 Year
  Sex: Female
  Weight: 104.31 kg

DRUGS (1)
  1. NEXPLANON [Suspect]
     Indication: CONTRACEPTION
     Dosage: STRENGTH 68 MG (1 STANDARD PACKAGE PREFLAPP OF 1)
     Route: 059
     Dates: start: 201306

REACTIONS (3)
  - Device breakage [Recovered/Resolved]
  - Rectal fissure [Unknown]
  - Diarrhoea [Unknown]
